FAERS Safety Report 4917643-9 (Version None)
Quarter: 2006Q1

REPORT INFORMATION
  Report Type: 
  Country: None (occurrence: None)
  Receive Date: 20060221
  Receipt Date: 20060208
  Transmission Date: 20060701
  Serious: Yes (Hospitalization, Other)
  Sender: FDA-Public Use
  Company Number: US-JNJFOC-20051101102

PATIENT
  Sex: Female
  Weight: 54.43 kg

DRUGS (5)
  1. TOPAMAX [Suspect]
     Indication: MIGRAINE PROPHYLAXIS
     Route: 048
  2. TOPAMAX [Suspect]
     Indication: BIPOLAR DISORDER
     Route: 048
  3. DEXTROAMPHETAMINE [Concomitant]
     Indication: BIPOLAR DISORDER
  4. ZYPREXA [Concomitant]
  5. ACIPHEX [Concomitant]

REACTIONS (11)
  - ABDOMINAL PAIN [None]
  - BILIARY DILATATION [None]
  - DECREASED APPETITE [None]
  - DYSPEPSIA [None]
  - FLATULENCE [None]
  - GALLBLADDER DISORDER [None]
  - INFECTION [None]
  - PANCREATITIS [None]
  - STOMACH DISCOMFORT [None]
  - THERAPEUTIC RESPONSE UNEXPECTED [None]
  - WEIGHT DECREASED [None]
